FAERS Safety Report 8475556-2 (Version None)
Quarter: 2012Q2

REPORT INFORMATION
  Report Type: 
  Country: None (occurrence: None)
  Receive Date: 20120628
  Receipt Date: 20120619
  Transmission Date: 20120825
  Serious: Yes (Other)
  Sender: FDA-Public Use
  Company Number: US-ASTRAZENECA-2012SE40955

PATIENT
  Age: 61 Year
  Sex: Male
  Weight: 86.2 kg

DRUGS (4)
  1. CELEBREX [Concomitant]
     Indication: PAIN
     Route: 048
  2. NEXIUM [Suspect]
     Indication: GASTROOESOPHAGEAL REFLUX DISEASE
     Route: 048
  3. LYRICA [Concomitant]
     Indication: PAIN
  4. LORTAB [Concomitant]
     Indication: PAIN

REACTIONS (4)
  - BACK PAIN [None]
  - DRUG DOSE OMISSION [None]
  - INTENTIONAL DRUG MISUSE [None]
  - NAUSEA [None]
